FAERS Safety Report 18463451 (Version 2)
Quarter: 2020Q4

REPORT INFORMATION
  Report Type: Spontaneous
  Country: US (occurrence: US)
  Receive Date: 20201104
  Receipt Date: 20201201
  Transmission Date: 20210114
  Serious: Yes (Other)
  Sender: FDA-Public Use
  Company Number: US-BAYER-2020-233781

PATIENT
  Age: 6 Year
  Sex: Male

DRUGS (5)
  1. ANTIHEMOPHILIC FACTOR (RECOMBINANT), SUCROSE FORMULATED FS [Suspect]
     Active Substance: ANTIHEMOPHILIC FACTOR, HUMAN RECOMBINANT
     Indication: PROPHYLAXIS
     Dosage: UNK, QD
  2. EMICIZUMAB. [Concomitant]
     Active Substance: EMICIZUMAB
     Dosage: 1.5 MG/KG, OW
  3. ANTIHEMOPHILIC FACTOR (RECOMBINANT), SUCROSE FORMULATED FS [Suspect]
     Active Substance: ANTIHEMOPHILIC FACTOR, HUMAN RECOMBINANT
     Indication: PROPHYLAXIS
     Dosage: UNK UNK, OW
  4. EMICIZUMAB. [Concomitant]
     Active Substance: EMICIZUMAB
     Dosage: STANDARD LOADING DOSES
  5. EMICIZUMAB. [Concomitant]
     Active Substance: EMICIZUMAB
     Dosage: 3 MG/KG, OW

REACTIONS (1)
  - Anti factor VIII antibody positive [Not Recovered/Not Resolved]
